FAERS Safety Report 11858061 (Version 2)
Quarter: 2015Q4

REPORT INFORMATION
  Report Type: Report from Study
  Country: AU (occurrence: AU)
  Receive Date: 20151222
  Receipt Date: 20151228
  Transmission Date: 20160305
  Serious: No
  Sender: FDA-Public Use
  Company Number: AU-ABBVIE-15K-008-1520034-00

PATIENT
  Weight: 66 kg

DRUGS (1)
  1. HUMIRA [Suspect]
     Active Substance: ADALIMUMAB
     Indication: CROHN^S DISEASE
     Route: 058
     Dates: start: 20120713

REACTIONS (3)
  - Malaise [Unknown]
  - Drug level below therapeutic [Unknown]
  - Crohn^s disease [Unknown]
